FAERS Safety Report 22116571 (Version 1)
Quarter: 2023Q1

REPORT INFORMATION
  Report Type: Spontaneous
  Country: US (occurrence: None)
  Receive Date: 20230320
  Receipt Date: 20230320
  Transmission Date: 20230418
  Serious: Yes (Other)
  Sender: FDA-Public Use
  Company Number: None

PATIENT
  Age: 76 Year
  Sex: Female
  Weight: 101.25 kg

DRUGS (8)
  1. CEFDINIR [Suspect]
     Active Substance: CEFDINIR
     Indication: Urine analysis
     Route: 048
     Dates: start: 20230316, end: 20230317
  2. LISINOPRIL [Concomitant]
     Active Substance: LISINOPRIL
  3. NORVASC [Concomitant]
     Active Substance: AMLODIPINE BESYLATE
  4. VITAMIN D NOS [Concomitant]
     Active Substance: VITAMIN D NOS
  5. VITAMIN E [Concomitant]
     Active Substance: .ALPHA.-TOCOPHEROL
  6. VITAMIN C [Concomitant]
     Active Substance: ASCORBIC ACID
  7. POTASSIUM [Concomitant]
     Active Substance: POTASSIUM
  8. Eldeberry [Concomitant]

REACTIONS (4)
  - Nausea [None]
  - Vomiting [None]
  - Headache [None]
  - Rash [None]

NARRATIVE: CASE EVENT DATE: 20230317
